FAERS Safety Report 4696369-3 (Version None)
Quarter: 2005Q2

REPORT INFORMATION
  Report Type: 
  Country: None (occurrence: None)
  Receive Date: 20050620
  Receipt Date: 20050610
  Transmission Date: 20051028
  Serious: Yes (Hospitalization)
  Sender: FDA-Public Use
  Company Number: KII-2005-0016960

PATIENT
  Age: 2 Year
  Sex: Male

DRUGS (4)
  1. MORPHINE SULFATE [Suspect]
     Indication: DRUG USE FOR UNKNOWN INDICATION
     Dosage: ORAL
     Route: 048
     Dates: start: 20050520, end: 20050520
  2. AMITRIPTYLINE (AMITRIPTYLINE) [Suspect]
     Indication: DRUG USE FOR UNKNOWN INDICATION
     Dates: start: 20050520, end: 20050520
  3. CHLORDIAZEPOXIDE [Suspect]
     Indication: DRUG USE FOR UNKNOWN INDICATION
     Dosage: ORAL
     Route: 048
     Dates: start: 20050520, end: 20050520
  4. UNKNOWN [Concomitant]

REACTIONS (4)
  - ACCIDENTAL EXPOSURE [None]
  - ASTHENIA [None]
  - MULTIPLE DRUG OVERDOSE [None]
  - SOMNOLENCE [None]
